FAERS Safety Report 12820847 (Version 1)
Quarter: 2016Q4

REPORT INFORMATION
  Report Type: Spontaneous
  Country: US (occurrence: US)
  Receive Date: 20161006
  Receipt Date: 20161006
  Transmission Date: 20170207
  Serious: No
  Sender: FDA-Public Use
  Company Number: US-BAYER-2016-193685

PATIENT
  Age: 69 Year
  Sex: Female
  Weight: 120.18 kg

DRUGS (1)
  1. MIRALAX [Suspect]
     Active Substance: POLYETHYLENE GLYCOL 3350
     Indication: GASTROINTESTINAL DISORDER
     Dosage: 1 DF, BID; 1 PACKET IN MORN AND 1 PACKET AT NIGHT FOR 5 DAYS AND THEN ONE PACK EVERYDAY
     Route: 048
     Dates: start: 2014

REACTIONS (2)
  - Product use issue [None]
  - Weight increased [Not Recovered/Not Resolved]

NARRATIVE: CASE EVENT DATE: 2014
